FAERS Safety Report 9223842 (Version 2)
Quarter: 2013Q2

REPORT INFORMATION
  Report Type: Spontaneous
  Country: IT (occurrence: IT)
  Receive Date: 20130411
  Receipt Date: 20130529
  Transmission Date: 20140414
  Serious: Yes (Hospitalization)
  Sender: FDA-Public Use
  Company Number: IT-AMGEN-ITASP2013024769

PATIENT
  Age: 74 Year
  Sex: Female

DRUGS (1)
  1. NPLATE [Suspect]
     Indication: IDIOPATHIC THROMBOCYTOPENIC PURPURA
     Dosage: 560 MUG/KG, CYCLICAL
     Route: 058
     Dates: start: 20130214, end: 20130228

REACTIONS (1)
  - Retinal detachment [Recovered/Resolved with Sequelae]
